FAERS Safety Report 7969733-4 (Version None)
Quarter: 2011Q4

REPORT INFORMATION
  Report Type: 
  Country: None (occurrence: None)
  Receive Date: 20111121
  Receipt Date: 20110816
  Transmission Date: 20120403
  Serious: No
  Sender: FDA-Public Use
  Company Number: 1000022922

PATIENT
  Age: 55 Year
  Sex: Female

DRUGS (3)
  1. TOPIRAMATE [Concomitant]
  2. ALPRAZOLAM [Concomitant]
  3. VIIBRYD [Suspect]
     Indication: DEPRESSION
     Dosage: 10MG (10 MG, 1 IN 1 D), ORAL
     Route: 048
     Dates: start: 20110811

REACTIONS (4)
  - HEADACHE [None]
  - MYALGIA [None]
  - SOMNOLENCE [None]
  - DIARRHOEA [None]
